FAERS Safety Report 6622747-9 (Version None)
Quarter: 2010Q1

REPORT INFORMATION
  Report Type: 
  Country: None (occurrence: None)
  Receive Date: 20100310
  Receipt Date: 20100301
  Transmission Date: 20100710
  Serious: Yes (Other)
  Sender: FDA-Public Use
  Company Number: US-BAYER-201015146NA

PATIENT
  Sex: Female

DRUGS (1)
  1. MIRENA [Suspect]
     Indication: DRUG USE FOR UNKNOWN INDICATION
     Dosage: FREQUENCY CONTINUOUS
     Route: 015
     Dates: start: 20090530, end: 20091201

REACTIONS (12)
  - ABDOMINAL PAIN [None]
  - AMENORRHOEA [None]
  - ANGER [None]
  - ARTHRALGIA [None]
  - BREAST PAIN [None]
  - DEPRESSED MOOD [None]
  - EMOTIONAL DISORDER [None]
  - FATIGUE [None]
  - MOOD ALTERED [None]
  - MUSCULOSKELETAL STIFFNESS [None]
  - NECK PAIN [None]
  - THINKING ABNORMAL [None]
